FAERS Safety Report 7635974-9 (Version None)
Quarter: 2011Q3

REPORT INFORMATION
  Report Type: 
  Country: None (occurrence: None)
  Receive Date: 20110726
  Receipt Date: 20110713
  Transmission Date: 20111222
  Serious: Yes (Other)
  Sender: FDA-Public Use
  Company Number: US-ROCHE-752050

PATIENT
  Sex: Female
  Weight: 63.5 kg

DRUGS (3)
  1. ADVIL [Concomitant]
  2. ACCUTANE [Suspect]
     Indication: ACNE
     Route: 065
     Dates: start: 19980101, end: 20020101
  3. ORTHO-NOVUM [Concomitant]

REACTIONS (8)
  - INFLAMMATORY BOWEL DISEASE [None]
  - DEPRESSION [None]
  - RECTAL POLYP [None]
  - ANXIETY [None]
  - OBSESSIVE-COMPULSIVE DISORDER [None]
  - COLITIS ULCERATIVE [None]
  - GASTROINTESTINAL INJURY [None]
  - BLOOD CHOLESTEROL INCREASED [None]
